FAERS Safety Report 7677572-7 (Version None)
Quarter: 2011Q3

REPORT INFORMATION
  Report Type: 
  Country: None (occurrence: None)
  Receive Date: 20110811
  Receipt Date: 20110811
  Transmission Date: 20111222
  Serious: Yes (Other)
  Sender: FDA-Public Use
  Company Number: None

PATIENT
  Age: 41 Year
  Sex: Female
  Weight: 75.749 kg

DRUGS (17)
  1. NUCYNTA [Suspect]
     Indication: PAIN
     Dosage: 50 MG
     Route: 048
     Dates: start: 20110620, end: 20110808
  2. NUCYNTA [Suspect]
     Indication: BLADDER DISORDER
     Dosage: 50 MG
     Route: 048
     Dates: start: 20110620, end: 20110808
  3. NUCYNTA [Suspect]
     Indication: FIBROMYALGIA
     Dosage: 50 MG
     Route: 048
     Dates: start: 20110620, end: 20110808
  4. CLONAZEPAM [Concomitant]
     Route: 048
  5. COLACE [Concomitant]
     Route: 048
  6. CALCIUM CITRATE WITH VITAMIN D [Concomitant]
     Route: 048
  7. CINAMMON, FOLIC ACID, BETACAROTENE, VITAMIN E, AND SELENIUM. [Concomitant]
  8. NITROFURONTIN [Concomitant]
     Route: 048
  9. SINGULAIR [Concomitant]
     Route: 048
  10. CRESTOR [Concomitant]
     Route: 048
  11. JUNEL 1.5/30 [Concomitant]
     Route: 048
  12. WOMEN VITAMIN [Concomitant]
     Route: 048
  13. TRIMETHIPRIM [Concomitant]
     Route: 048
  14. HYDROXIZINE [Concomitant]
     Route: 048
  15. RANITIDINE [Concomitant]
     Route: 048
  16. MARCAINE, HEPARIN, KENALOG, LYDICAINE, ELMIRON [Concomitant]
  17. PHENAZOPYRIDINE HCL TAB [Concomitant]
     Route: 048

REACTIONS (7)
  - DIZZINESS [None]
  - THINKING ABNORMAL [None]
  - GAIT DISTURBANCE [None]
  - CHEST PAIN [None]
  - AGITATION [None]
  - HEADACHE [None]
  - HALLUCINATION [None]
